FAERS Safety Report 6165361 (Version 29)
Quarter: 2014Q2

REPORT INFORMATION
  Report Type: Spontaneous
  Country: US (occurrence: US)
  Receive Date: 20061110
  Receipt Date: 20140623
  Transmission Date: 20141212
  Serious: Yes (Other)
  Sender: FDA-Public Use
  Company Number: PHEH2006US13529

PATIENT
  Age: 62 Year
  Sex: Female
  Weight: 75 kg

DRUGS (12)
  1. ZOMETA [Suspect]
     Indication: PLASMA CELL MYELOMA
     Route: 042
     Dates: start: 2003
  2. AREDIA [Suspect]
     Route: 042
  3. CHEMOTHERAPEUTICS,OTHER [Concomitant]
     Dosage: UNK UKN, UNK
     Dates: start: 2003
  4. THALIDOMIDE [Concomitant]
     Dosage: UNK UKN, UNK
  5. DECADRON                                /CAN/ [Concomitant]
     Dosage: UNK UKN, UNK
  6. NEUPOGEN [Concomitant]
     Dosage: UNK UKN, UNK
  7. ATIVAN [Concomitant]
  8. VELCADE [Concomitant]
  9. ALLEGRA [Concomitant]
  10. FLONASE [Concomitant]
  11. VITAMINS [Concomitant]
  12. CALCIUM [Concomitant]

REACTIONS (82)
  - Ovarian failure [Unknown]
  - Compression fracture [Unknown]
  - Peripheral venous disease [Unknown]
  - Diverticulum intestinal [Unknown]
  - Rectal polyp [Unknown]
  - Osteoporosis [Recovering/Resolving]
  - Osteonecrosis of jaw [Not Recovered/Not Resolved]
  - Osteitis [Unknown]
  - Bone lesion [Unknown]
  - Impaired healing [Not Recovered/Not Resolved]
  - Bone disorder [Not Recovered/Not Resolved]
  - Pain in jaw [Not Recovered/Not Resolved]
  - Mastication disorder [Not Recovered/Not Resolved]
  - Jaw disorder [Not Recovered/Not Resolved]
  - Gingival disorder [Not Recovered/Not Resolved]
  - Mouth ulceration [Unknown]
  - Oesophagitis [Unknown]
  - Pancytopenia [Unknown]
  - Megakaryocytes decreased [Unknown]
  - Osteopenia [Unknown]
  - QRS axis abnormal [Unknown]
  - Arthralgia [Unknown]
  - Acute sinusitis [Unknown]
  - Colon adenoma [Unknown]
  - Rectocele [Unknown]
  - Anorectal disorder [Unknown]
  - Faecal incontinence [Unknown]
  - Atelectasis [Unknown]
  - Inspiratory capacity decreased [Unknown]
  - Hypercholesterolaemia [Unknown]
  - Oedema peripheral [Unknown]
  - Corneal opacity [Unknown]
  - Coronary artery disease [Unknown]
  - Dyspnoea [Unknown]
  - Nausea [Unknown]
  - Eosinophilia [Unknown]
  - Platelet count increased [Unknown]
  - Eye burns [Unknown]
  - Muscle spasms [Unknown]
  - Pain in extremity [Unknown]
  - Asthenia [Unknown]
  - Cystocele [Unknown]
  - Stress urinary incontinence [Unknown]
  - Uterine prolapse [Unknown]
  - Visual acuity reduced [Unknown]
  - Cataract [Unknown]
  - Anxiety [Unknown]
  - Swelling [Unknown]
  - Varicophlebitis [Unknown]
  - Venous occlusion [Unknown]
  - Spinal osteoarthritis [Unknown]
  - Paraesthesia [Unknown]
  - Hot flush [Unknown]
  - Decreased appetite [Unknown]
  - Intervertebral disc degeneration [Unknown]
  - Intervertebral disc space narrowing [Unknown]
  - Uterine polyp [Unknown]
  - Endosalpingiosis [Unknown]
  - Ovarian cyst [Unknown]
  - Ovarian adenoma [Unknown]
  - Oral discharge [Unknown]
  - Excessive granulation tissue [Unknown]
  - Paraesthesia oral [Unknown]
  - Tongue ulceration [Unknown]
  - Bundle branch block left [Unknown]
  - Eustachian tube dysfunction [Unknown]
  - Hypertension [Unknown]
  - Vertebral osteophyte [Unknown]
  - Malignant melanoma [Unknown]
  - Second primary malignancy [Unknown]
  - Bacterial disease carrier [Unknown]
  - Pneumonia streptococcal [Unknown]
  - Influenza [Unknown]
  - Constipation [Unknown]
  - Bone pain [Unknown]
  - Joint swelling [Unknown]
  - Upper respiratory tract infection [Recovered/Resolved]
  - Pyrexia [Recovered/Resolved]
  - Breast calcifications [Unknown]
  - Fall [Unknown]
  - Dysuria [Unknown]
  - Urinary tract infection [Unknown]
